FAERS Safety Report 6525563-1 (Version None)
Quarter: 2009Q4

REPORT INFORMATION
  Report Type: 
  Country: None (occurrence: None)
  Receive Date: 20091224
  Receipt Date: 20091214
  Transmission Date: 20100525
  Serious: Yes (Death, Hospitalization)
  Sender: FDA-Public Use
  Company Number: 2009AL007871

PATIENT
  Age: 78 Year
  Sex: Male

DRUGS (2)
  1. RAMIPRIL [Suspect]
     Indication: HYPERTENSION
     Dosage: ;PO
     Route: 048
     Dates: end: 20091203
  2. NAPROXEN [Concomitant]

REACTIONS (9)
  - ABDOMINAL DISCOMFORT [None]
  - ACUTE MYOCARDIAL INFARCTION [None]
  - DEHYDRATION [None]
  - HYPOTENSION [None]
  - MYOCARDIAL ISCHAEMIA [None]
  - NO THERAPEUTIC RESPONSE [None]
  - OVERDOSE [None]
  - RENAL FAILURE ACUTE [None]
  - SHOCK [None]
